FAERS Safety Report 19625076 (Version 3)
Quarter: 2021Q3

REPORT INFORMATION
  Report Type: Report from Study
  Country: US (occurrence: US)
  Receive Date: 20210728
  Receipt Date: 20210804
  Transmission Date: 20211014
  Serious: Yes (Life-Threatening, Hospitalization, Other)
  Sender: FDA-Public Use
  Company Number: US-AMGEN-USACT2021115005

PATIENT
  Age: 13 Year
  Sex: Male
  Weight: 40.7 kg

DRUGS (7)
  1. VALIUM [Concomitant]
     Active Substance: DIAZEPAM
     Dosage: 1 MILLIGRAM
     Route: 048
     Dates: start: 20160613
  2. DENOSUMAB [Suspect]
     Active Substance: DENOSUMAB
     Indication: OSTEOGENESIS IMPERFECTA
     Dosage: 0.54 MILLILITER, Q6MO
     Route: 058
     Dates: start: 20170731
  3. MOTRIN [Concomitant]
     Active Substance: IBUPROFEN
     Dosage: 200 MILLIGRAM
     Route: 048
     Dates: start: 20081201
  4. VITAMIN D [COLECALCIFEROL] [Concomitant]
     Active Substance: CHOLECALCIFEROL
     Indication: OSTEOGENESIS IMPERFECTA
     Dosage: 1000 INTERNATIONAL UNIT
     Route: 048
     Dates: start: 20170731
  5. TYLENOL [Concomitant]
     Active Substance: ACETAMINOPHEN
     Dosage: 300 MILLIGRAM
     Route: 048
     Dates: start: 20080527
  6. MORPHINE [Concomitant]
     Active Substance: MORPHINE
     Dosage: 1 MILLIGRAM
     Route: 048
     Dates: start: 20080527
  7. CALCIUM [Suspect]
     Active Substance: CALCIUM
     Indication: OSTEOGENESIS IMPERFECTA
     Dosage: 1000 MILLIGRAM
     Route: 048
     Dates: start: 20170731

REACTIONS (1)
  - Hypercalcaemia [Recovered/Resolved]

NARRATIVE: CASE EVENT DATE: 20210711
